FAERS Safety Report 7669391-2 (Version None)
Quarter: 2011Q3

REPORT INFORMATION
  Report Type: 
  Country: None (occurrence: None)
  Receive Date: 20110808
  Receipt Date: 20110725
  Transmission Date: 20111222
  Serious: Yes (Hospitalization)
  Sender: FDA-Public Use
  Company Number: JP-SANOFI-AVENTIS-2011SA049099

PATIENT
  Age: 77 Year
  Sex: Male
  Weight: 52 kg

DRUGS (10)
  1. NICORANDIL [Suspect]
     Indication: ANGINA PECTORIS
     Route: 048
     Dates: start: 20070328
  2. LASIX [Suspect]
     Indication: HYPERTENSION
     Route: 048
     Dates: start: 20070328
  3. EPOGIN [Suspect]
     Indication: NEPHROGENIC ANAEMIA
     Route: 042
     Dates: start: 20070328
  4. AZUCURENIN S [Concomitant]
  5. PERSANTIN [Suspect]
     Indication: ANGINA PECTORIS
     Route: 048
     Dates: start: 20070328
  6. AVAPRO [Suspect]
     Indication: HYPERTENSION
     Route: 048
     Dates: start: 20070328
  7. ASPIRIN [Suspect]
     Indication: ANGINA PECTORIS
     Route: 048
     Dates: start: 20070328
  8. DILTIAZEM HYDROCHLORIDE [Suspect]
     Indication: HYPERTENSION
     Route: 048
     Dates: start: 20070328
  9. FAMOTIDINE [Concomitant]
     Dates: start: 20070328
  10. SENNOSIDE A+B [Concomitant]
     Dates: start: 20070328

REACTIONS (4)
  - DISORIENTATION [None]
  - DYSARTHRIA [None]
  - CEREBRAL INFARCTION [None]
  - ATRIAL FIBRILLATION [None]
